FAERS Safety Report 10056794 (Version 2)
Quarter: 2014Q2

REPORT INFORMATION
  Report Type: Spontaneous
  Country: JP (occurrence: JP)
  Receive Date: 20140403
  Receipt Date: 20140414
  Transmission Date: 20141212
  Serious: Yes (Hospitalization)
  Sender: FDA-Public Use
  Company Number: PHHY2014JP037333

PATIENT
  Age: 74 Year
  Sex: Female
  Weight: 63 kg

DRUGS (1)
  1. ANASTROZOLE [Suspect]
     Indication: BREAST CANCER
     Dosage: 1 MG
     Route: 048
     Dates: start: 200802, end: 200808

REACTIONS (12)
  - Autoimmune hepatitis [Recovering/Resolving]
  - Jaundice [Recovering/Resolving]
  - Hyperbilirubinaemia [Unknown]
  - Ocular icterus [Unknown]
  - Pyrexia [Unknown]
  - Fatigue [Recovering/Resolving]
  - Malaise [Recovered/Resolved]
  - Decreased appetite [Recovered/Resolved]
  - Blood immunoglobulin G increased [Recovering/Resolving]
  - Hepatic enzyme increased [Recovering/Resolving]
  - Prothrombin time prolonged [Unknown]
  - Red blood cell sedimentation rate increased [Unknown]
